FAERS Safety Report 7925242-X (Version None)
Quarter: 2011Q4

REPORT INFORMATION
  Report Type: 
  Country: None (occurrence: None)
  Receive Date: 20111118
  Receipt Date: 20110404
  Transmission Date: 20120403
  Serious: No
  Sender: FDA-Public Use
  Company Number: US-AMGEN-USASP2011017771

PATIENT
  Age: 78 Year
  Sex: Male

DRUGS (14)
  1. BUPROPION HCL [Concomitant]
     Dosage: 75 MG, UNK
  2. SPIRIVA [Concomitant]
  3. ACTOS [Concomitant]
     Dosage: 30 MG, UNK
  4. METFORMIN HCL [Concomitant]
     Dosage: 500 MG, UNK
  5. OMEPRAZOLE [Concomitant]
     Dosage: 20 MG, UNK
  6. FOLIC ACID [Concomitant]
     Dosage: 1 MG, UNK
  7. CALCIUM +VIT D [Concomitant]
  8. METHOTREXATE [Concomitant]
     Dosage: 2.5 MG, UNK
  9. PRAVASTATIN [Concomitant]
     Dosage: 10 MG, UNK
  10. TAMSULOSIN HCL [Concomitant]
     Dosage: 0.4 MG, UNK
  11. ENBREL [Suspect]
     Indication: PRODUCT USED FOR UNKNOWN INDICATION
     Dosage: 50 MG, QWK
  12. FOSINOPRIL SODIUM [Concomitant]
     Dosage: 20 MG, UNK
  13. RECLAST [Concomitant]
  14. TYLENOL-500 [Concomitant]
     Dosage: 650 MG, UNK

REACTIONS (1)
  - INFECTION [None]
